FAERS Safety Report 6570263-5 (Version None)
Quarter: 2010Q1

REPORT INFORMATION
  Report Type: 
  Country: None (occurrence: None)
  Receive Date: 20100204
  Receipt Date: 20100127
  Transmission Date: 20100710
  Serious: Yes (Other)
  Sender: FDA-Public Use
  Company Number: JP-PFIZER INC-2010012537

PATIENT
  Age: 39 Year
  Sex: Male

DRUGS (7)
  1. ZITHROMAX [Suspect]
     Dosage: UNK
     Route: 048
     Dates: start: 20091128
  2. BANAN [Concomitant]
     Dosage: UNK
     Route: 048
     Dates: start: 20091124, end: 20091127
  3. BANAN [Concomitant]
     Dosage: UNK
     Route: 048
     Dates: start: 20100108
  4. MUCOSTA [Concomitant]
     Dosage: UNK
     Route: 048
     Dates: start: 20091124, end: 20091130
  5. ACDEAM [Concomitant]
     Dosage: UNK
     Route: 048
     Dates: start: 20091124
  6. MUCOSOLVAN [Concomitant]
     Dosage: UNK
     Route: 048
  7. ASVERIN [Concomitant]
     Dosage: UNK
     Route: 048

REACTIONS (2)
  - EYE PAIN [None]
  - INTRAOCULAR PRESSURE INCREASED [None]
